FAERS Safety Report 18163095 (Version 1)
Quarter: 2020Q3

REPORT INFORMATION
  Report Type: Spontaneous
  Country: CA (occurrence: CA)
  Receive Date: 20200818
  Receipt Date: 20200818
  Transmission Date: 20201103
  Serious: Yes (Other)
  Sender: FDA-Public Use
  Company Number: CA-ACCORD-195576

PATIENT
  Age: 59 Year
  Sex: Female

DRUGS (1)
  1. CAPECITABINE. [Suspect]
     Active Substance: CAPECITABINE
     Indication: METASTASES TO LIVER
     Dosage: 2 EVERY 1 DAYS
     Route: 048

REACTIONS (5)
  - Epigastric discomfort [Unknown]
  - Malignant neoplasm progression [Unknown]
  - Pulmonary mass [Unknown]
  - Breast cancer [Unknown]
  - Palmar-plantar erythrodysaesthesia syndrome [Unknown]
